FAERS Safety Report 21929215 (Version 2)
Quarter: 2023Q2

REPORT INFORMATION
  Report Type: Other
  Country: US (occurrence: US)
  Receive Date: 20230131
  Receipt Date: 20230414
  Transmission Date: 20230721
  Serious: Yes (Hospitalization)
  Sender: FDA-Public Use
  Company Number: US-GBT-019707

PATIENT
  Sex: Male

DRUGS (1)
  1. OXBRYTA [Suspect]
     Active Substance: VOXELOTOR
     Indication: Thalassaemia
     Dosage: 300 MG TABLETS FOR ORAL SUSPENSION/5 TABLETS ONCE A DAY.
     Route: 065
     Dates: start: 202210

REACTIONS (3)
  - Sickle cell anaemia with crisis [Unknown]
  - Constipation [Unknown]
  - Sickle cell anaemia with crisis [Not Recovered/Not Resolved]
